FAERS Safety Report 6074697-7 (Version None)
Quarter: 2009Q1

REPORT INFORMATION
  Report Type: 
  Country: None (occurrence: None)
  Receive Date: 20090209
  Receipt Date: 20090209
  Transmission Date: 20090719
  Serious: No
  Sender: FDA-Public Use
  Company Number: None

PATIENT
  Age: 77 Year
  Sex: Female
  Weight: 55.3388 kg

DRUGS (2)
  1. ZETIA [Suspect]
     Indication: BLOOD CHOLESTEROL
     Dosage: 10 MG DAILY
     Dates: start: 20070101, end: 20080101
  2. SEROQUEL [Suspect]
     Indication: BEREAVEMENT REACTION
     Dosage: 25 MG DAILY
     Dates: start: 20070101, end: 20080101

REACTIONS (5)
  - DEATH OF RELATIVE [None]
  - MIDDLE INSOMNIA [None]
  - MUSCLE DISORDER [None]
  - MUSCLE TIGHTNESS [None]
  - MUSCULOSKELETAL STIFFNESS [None]
